FAERS Safety Report 13802126 (Version 1)
Quarter: 2017Q3

REPORT INFORMATION
  Report Type: Spontaneous
  Country: US (occurrence: US)
  Receive Date: 20170727
  Receipt Date: 20170727
  Transmission Date: 20171127
  Serious: Yes (Other)
  Sender: FDA-Public Use
  Company Number: US-ABBVIE-17P-163-2051947-00

PATIENT
  Sex: Female

DRUGS (1)
  1. LUPRON DEPOT [Suspect]
     Active Substance: LEUPROLIDE ACETATE
     Indication: MENORRHAGIA
     Route: 050

REACTIONS (6)
  - Hot flush [Unknown]
  - Crying [Unknown]
  - Depression [Unknown]
  - Suicidal ideation [Unknown]
  - Muscle spasms [Unknown]
  - Mood swings [Unknown]
